FAERS Safety Report 7106209-0 (Version None)
Quarter: 2010Q4

REPORT INFORMATION
  Report Type: 
  Country: None (occurrence: None)
  Receive Date: 20101116
  Receipt Date: 20101104
  Transmission Date: 20110411
  Serious: Yes (Other)
  Sender: FDA-Public Use
  Company Number: US-CELGENEUS-163-21880-10091191

PATIENT
  Sex: Female

DRUGS (1)
  1. REVLIMID [Suspect]
     Indication: MULTIPLE MYELOMA
     Route: 048
     Dates: start: 20080901

REACTIONS (4)
  - BEHAVIOURAL AND PSYCHIATRIC SYMPTOMS OF DEMENTIA [None]
  - DEEP VEIN THROMBOSIS [None]
  - INFECTION [None]
  - WHITE BLOOD CELL COUNT DECREASED [None]
